FAERS Safety Report 25519731 (Version 1)
Quarter: 2025Q3

REPORT INFORMATION
  Report Type: Spontaneous
  Country: US (occurrence: US)
  Receive Date: 20250704
  Receipt Date: 20250704
  Transmission Date: 20251020
  Serious: No
  Sender: PFIZER
  Company Number: US-PFIZER INC-202500051610

PATIENT
  Age: 81 Year
  Sex: Female

DRUGS (2)
  1. TUKYSA [Suspect]
     Active Substance: TUCATINIB
     Dosage: TAKE 1 TABLET TWICE DAILY WITH OR WITHOUT FOOD
     Route: 048
  2. TUKYSA [Suspect]
     Active Substance: TUCATINIB
     Dosage: 150 MG, 1 TABLET TWICE DAILY

REACTIONS (2)
  - Arthralgia [Unknown]
  - Off label use [Unknown]
